FAERS Safety Report 14258607 (Version 1)
Quarter: 2017Q4

REPORT INFORMATION
  Report Type: Spontaneous
  Country: US (occurrence: None)
  Receive Date: 20171205
  Receipt Date: 20171205
  Transmission Date: 20180321
  Serious: Yes (Other)
  Sender: FDA-Public Use
  Company Number: None

PATIENT
  Age: 36 Year
  Sex: Female
  Weight: 78.93 kg

DRUGS (3)
  1. ABILIFY [Suspect]
     Active Substance: ARIPIPRAZOLE
  2. LEVOTHYROXINE. [Concomitant]
     Active Substance: LEVOTHYROXINE
  3. LAMICTAL [Concomitant]
     Active Substance: LAMOTRIGINE

REACTIONS (6)
  - Failed induction of labour [None]
  - Umbilical cord prolapse [None]
  - Maternal drugs affecting foetus [None]
  - Postmature baby [None]
  - Caesarean section [None]
  - Maternal exposure during pregnancy [None]

NARRATIVE: CASE EVENT DATE: 20170913
